FAERS Safety Report 4328624-0 (Version None)
Quarter: 2004Q1

REPORT INFORMATION
  Report Type: 
  Country: None (occurrence: None)
  Receive Date: 20040322
  Receipt Date: 20040302
  Transmission Date: 20041129
  Serious: Yes (Life-Threatening, Hospitalization)
  Sender: FDA-Public Use
  Company Number: 2004SA000033

PATIENT
  Age: 56 Year
  Sex: Male

DRUGS (2)
  1. THYMOGLOBULIN [Suspect]
     Indication: RENAL TRANSPLANT
     Dosage: 125 MG; INTRAVENOUS
     Route: 042
     Dates: start: 20040211
  2. SOLU-MEDROL [Concomitant]

REACTIONS (8)
  - ANURIA [None]
  - BLOOD CREATINE PHOSPHOKINASE INCREASED [None]
  - COMPLICATIONS OF TRANSPLANT SURGERY [None]
  - GRAFT DYSFUNCTION [None]
  - HAEMODIALYSIS [None]
  - HYPOTENSION [None]
  - ISCHAEMIC HEPATITIS [None]
  - LACTIC ACIDOSIS [None]
